FAERS Safety Report 21508538 (Version 2)
Quarter: 2022Q4

REPORT INFORMATION
  Report Type: Spontaneous
  Country: FR (occurrence: FR)
  Receive Date: 20221026
  Receipt Date: 20221110
  Transmission Date: 20230113
  Serious: Yes (Other)
  Sender: FDA-Public Use
  Company Number: None

PATIENT
  Age: 76 Year
  Sex: Female

DRUGS (6)
  1. LAMOTRIGINE [Suspect]
     Active Substance: LAMOTRIGINE
     Indication: Epilepsy
     Dosage: UNIT DOSE : 100 MG , DURATION : 4 DAYS , THERAPY END DATE : NASK
     Dates: start: 20220308
  2. ESCITALOPRAM [Suspect]
     Active Substance: ESCITALOPRAM OXALATE
     Indication: Depression
     Dosage: UNIT DOSE : 5 MG  , DURATION : 4 DAYS , THERAPY END DATE : NASK
     Dates: start: 20220308
  3. TEGRETOL [Suspect]
     Active Substance: CARBAMAZEPINE
     Indication: Epilepsy
     Dosage: 300 MG IN THE MORNING, 400 MG IN THE EVENING ,UNIT DOSE : 700 MG,  THERAPY END DATE : NASK
     Dates: start: 20220307
  4. TEGRETOL [Suspect]
     Active Substance: CARBAMAZEPINE
     Indication: Neuralgia
  5. AZACTAM [Suspect]
     Active Substance: AZTREONAM
     Indication: Bacteraemia
     Dosage: FORM STRENGTH : 1 GRAM , UNIT DOSE :  1 GRAM  , FREQUENCY TIME :  8 HOUR , DURATION : 4 DAYS
     Route: 051
     Dates: start: 20220310, end: 20220314
  6. AUGMENTIN [Concomitant]
     Active Substance: AMOXICILLIN\CLAVULANATE POTASSIUM
     Indication: Pneumonia aspiration
     Dosage: UNIT DOSE : 1 GRAM   , FREQUENCY TIME : 8 HOUR   , DURATION :  4 DAYS
     Dates: start: 20220308, end: 20220310

REACTIONS (1)
  - Neutropenia [Unknown]

NARRATIVE: CASE EVENT DATE: 20220311
